FAERS Safety Report 12078472 (Version 3)
Quarter: 2016Q2

REPORT INFORMATION
  Report Type: Report from Study
  Country: NL (occurrence: NL)
  Receive Date: 20160216
  Receipt Date: 20160421
  Transmission Date: 20160815
  Serious: Yes (Death, Hospitalization, Other)
  Sender: FDA-Public Use
  Company Number: NL-AMGEN-NLDSL2016017118

PATIENT
  Age: 57 Year
  Sex: Male

DRUGS (3)
  1. XGEVA [Suspect]
     Active Substance: DENOSUMAB
     Indication: PROPHYLAXIS
     Dosage: 120 MG, (1.7 ML) UNK
     Route: 058
  2. XGEVA [Suspect]
     Active Substance: DENOSUMAB
     Dosage: UNK
     Route: 058
  3. XGEVA [Suspect]
     Active Substance: DENOSUMAB
     Dosage: UNK
     Route: 058

REACTIONS (3)
  - Hospitalisation [Unknown]
  - Neoplasm malignant [Fatal]
  - Intracranial venous sinus thrombosis [Not Recovered/Not Resolved]

NARRATIVE: CASE EVENT DATE: 20160206
